FAERS Safety Report 17903115 (Version 1)
Quarter: 2020Q2

REPORT INFORMATION
  Report Type: Spontaneous
  Country: DK (occurrence: DK)
  Receive Date: 20200617
  Receipt Date: 20200617
  Transmission Date: 20200714
  Serious: Yes (Hospitalization, Other)
  Sender: FDA-Public Use
  Company Number: DK-TEVA-2020-DK-1788673

PATIENT
  Sex: Female

DRUGS (1)
  1. TOPIRAMAT ACTAVIS [Suspect]
     Active Substance: TOPIRAMATE
     Route: 065
     Dates: start: 201909

REACTIONS (16)
  - Rash [Not Recovered/Not Resolved]
  - Swollen tongue [Unknown]
  - Contraindicated product administered [Unknown]
  - Vaginal haemorrhage [Unknown]
  - Skin exfoliation [Not Recovered/Not Resolved]
  - Fatigue [Unknown]
  - Polyp [Unknown]
  - Headache [Unknown]
  - Tongue disorder [Unknown]
  - Back pain [Unknown]
  - Tongue eruption [Unknown]
  - Tongue geographic [Not Recovered/Not Resolved]
  - Oropharyngeal pain [Unknown]
  - Joint swelling [Unknown]
  - Vasculitis [Unknown]
  - Onychomadesis [Unknown]

NARRATIVE: CASE EVENT DATE: 201910
